FAERS Safety Report 9780992 (Version 1)
Quarter: 2013Q4

REPORT INFORMATION
  Report Type: Spontaneous
  Country: BE (occurrence: BE)
  Receive Date: 20131224
  Receipt Date: 20131224
  Transmission Date: 20140711
  Serious: Yes (Hospitalization)
  Sender: FDA-Public Use
  Company Number: BE-JNJFOC-20131212948

PATIENT
  Age: 70 Year
  Sex: Male

DRUGS (5)
  1. XARELTO [Suspect]
     Indication: PULMONARY EMBOLISM
     Route: 048
     Dates: start: 20130705, end: 20130930
  2. XARELTO [Suspect]
     Indication: DEEP VEIN THROMBOSIS
     Route: 048
     Dates: start: 20130705, end: 20130930
  3. EMCONCOR [Concomitant]
     Route: 065
  4. BURINEX [Concomitant]
     Route: 065
  5. TRITACE [Concomitant]
     Route: 065

REACTIONS (7)
  - Umbilical hernia, obstructive [Unknown]
  - Intra-abdominal haemorrhage [Unknown]
  - Intestinal ischaemia [Unknown]
  - Renal failure acute [Unknown]
  - Cerebral ischaemia [Unknown]
  - Shock haemorrhagic [Unknown]
  - Pneumonia [Unknown]
